FAERS Safety Report 23766402 (Version 1)
Quarter: 2024Q2

REPORT INFORMATION
  Report Type: Spontaneous
  Country: CA (occurrence: CA)
  Receive Date: 20240422
  Receipt Date: 20240422
  Transmission Date: 20240716
  Serious: Yes (Death, Life-Threatening, Other)
  Sender: FDA-Public Use
  Company Number: CA-BAXTER-2024BAX016905

PATIENT
  Age: 64 Year
  Sex: Male
  Weight: 89 kg

DRUGS (15)
  1. CYCLOPHOSPHAMIDE [Suspect]
     Active Substance: CYCLOPHOSPHAMIDE
     Indication: Non-Hodgkin^s lymphoma
     Dosage: UNK, DOSAGE FORM: NOT SPECIFIED
     Route: 065
  2. FLUDARABINE [Suspect]
     Active Substance: FLUDARABINE PHOSPHATE
     Indication: Non-Hodgkin^s lymphoma
     Dosage: UNK, DOSAGE FORM: NOT SPECIFIED
     Route: 065
  3. YESCARTA [Suspect]
     Active Substance: AXICABTAGENE CILOLEUCEL
     Indication: Non-Hodgkin^s lymphoma
     Dosage: UNK, DOSAGE FORM: SUSPENSION INTRAVENOUS
     Route: 065
  4. GABAPENTIN [Concomitant]
     Active Substance: GABAPENTIN
     Dosage: UNK, DOSAGE FORM: NOT SPECIFIED
     Route: 065
  5. ALLOPURINOL [Concomitant]
     Active Substance: ALLOPURINOL
     Dosage: UNK
     Route: 065
  6. ATENOLOL [Concomitant]
     Active Substance: ATENOLOL
     Dosage: UNK, BP
     Route: 065
  7. CALQUENCE [Concomitant]
     Active Substance: ACALABRUTINIB
     Dosage: UNK
     Route: 065
  8. GRANISETRON [Concomitant]
     Active Substance: GRANISETRON
     Dosage: UNK, DOSAGE FORM: NOT SPECIFIED
     Route: 065
  9. METOCLOPRAMIDE [Concomitant]
     Active Substance: METOCLOPRAMIDE
     Dosage: UNK, DOSAGE FORM: NOT SPECIFIED
     Route: 065
  10. OLANZAPINE [Concomitant]
     Active Substance: OLANZAPINE
     Dosage: UNK, DOSAGE FORM: NOT SPECIFIED
     Route: 065
  11. PANTOPRAZOLE [Concomitant]
     Active Substance: PANTOPRAZOLE
     Dosage: UNK, DOSAGE FORM: NOT SPECIFIED
     Route: 065
  12. PROCHLORPERAZINE [Concomitant]
     Active Substance: PROCHLORPERAZINE
     Dosage: UNK, DOSAGE FORM: NOT SPECIFIED
     Route: 065
  13. ROSUVASTATIN [Concomitant]
     Active Substance: ROSUVASTATIN
     Dosage: UNK, DOSAGE FORM: NOT SPECIFIED
     Route: 058
  14. SITAGLIPTIN [Concomitant]
     Active Substance: SITAGLIPTIN
     Dosage: UNK
     Route: 065
  15. VALACYCLOVIR [Concomitant]
     Active Substance: VALACYCLOVIR HYDROCHLORIDE
     Dosage: UNK, DOSAGE FORM: NOT SPECIFIED
     Route: 065

REACTIONS (2)
  - Febrile neutropenia [Fatal]
  - Septic shock [Fatal]
